FAERS Safety Report 5297348-8 (Version None)
Quarter: 2007Q2

REPORT INFORMATION
  Report Type: 
  Country: None (occurrence: None)
  Receive Date: 20070409
  Receipt Date: 20070326
  Transmission Date: 20071010
  Serious: Yes (Other)
  Sender: FDA-Public Use
  Company Number: GXKR2007DE02806

PATIENT
  Sex: Male

DRUGS (1)
  1. DICLO SL 1A PHARMA (NGX) (DICLOFENAC) UNKNOWN [Suspect]
     Dosage: ONSET AFTER INTAKE OF 8 TABLETS; ORAL
     Route: 048

REACTIONS (9)
  - ABDOMINAL PAIN [None]
  - DIARRHOEA [None]
  - EPISTAXIS [None]
  - HEADACHE [None]
  - INFLUENZA LIKE ILLNESS [None]
  - MELAENA [None]
  - PAIN IN EXTREMITY [None]
  - PHARYNGOLARYNGEAL PAIN [None]
  - PYREXIA [None]
